FAERS Safety Report 8496897-9 (Version None)
Quarter: 2012Q3

REPORT INFORMATION
  Report Type: 
  Country: None (occurrence: None)
  Receive Date: 20120709
  Receipt Date: 20120628
  Transmission Date: 20120928
  Serious: Yes (Other)
  Sender: FDA-Public Use
  Company Number: NL-ELI_LILLY_AND_COMPANY-NL201207000649

PATIENT
  Sex: Female
  Weight: 74 kg

DRUGS (2)
  1. ACENOCOUMAROL [Concomitant]
     Indication: ARRHYTHMIA
     Dosage: 1 MG, PRN (REPORTED AS ACCORDING DOSE)
     Route: 048
     Dates: start: 20110304
  2. FORTEO [Suspect]
     Indication: OSTEOPOROSIS
     Dosage: 20 UG, QD
     Route: 058
     Dates: start: 20110101, end: 20120626

REACTIONS (1)
  - MULTIPLE MYELOMA [None]
